FAERS Safety Report 4445152-2 (Version None)
Quarter: 2004Q3

REPORT INFORMATION
  Report Type: 
  Country: None (occurrence: None)
  Receive Date: 20040907
  Receipt Date: 20040823
  Transmission Date: 20050211
  Serious: Yes (Other)
  Sender: FDA-Public Use
  Company Number: 2004047657

PATIENT
  Age: 30 Year
  Sex: Female

DRUGS (2)
  1. VFEND [Suspect]
     Indication: ASPERGILLOSIS
     Dosage: 400 MG (200 MG, 2 IN 1 D), ORAL
     Route: 048
     Dates: start: 20040614
  2. TRIMETHOPRIM [Concomitant]

REACTIONS (1)
  - PREGNANCY [None]
